FAERS Safety Report 5078069-3 (Version None)
Quarter: 2006Q3

REPORT INFORMATION
  Report Type: 
  Country: None (occurrence: None)
  Receive Date: 20060808
  Receipt Date: 20060727
  Transmission Date: 20061208
  Serious: Yes (Hospitalization)
  Sender: FDA-Public Use
  Company Number: 2006094178

PATIENT
  Age: 82 Year
  Sex: Female

DRUGS (1)
  1. CABERGOLINE [Suspect]
     Indication: DRUG USE FOR UNKNOWN INDICATION
     Dosage: ^LOW DOSE^, ORAL
     Route: 048

REACTIONS (3)
  - COLITIS ISCHAEMIC [None]
  - NECROSIS [None]
  - ULCER [None]
